FAERS Safety Report 19761026 (Version 1)
Quarter: 2021Q3

REPORT INFORMATION
  Report Type: Spontaneous
  Country: US (occurrence: US)
  Receive Date: 20210827
  Receipt Date: 20210827
  Transmission Date: 20211014
  Serious: Yes (Death)
  Sender: FDA-Public Use
  Company Number: None

PATIENT
  Age: 73 Year
  Sex: Female
  Weight: 85.5 kg

DRUGS (3)
  1. GAMMAGARD LIQUID [Suspect]
     Active Substance: HUMAN IMMUNOGLOBULIN G
     Indication: MYASTHENIA GRAVIS
     Route: 042
     Dates: start: 20210728, end: 20210728
  2. ACETAMINOPHEN 650MG [Concomitant]
     Dates: start: 20210728
  3. DIPHENHYDRAMINE 25MG [Concomitant]
     Active Substance: DIPHENHYDRAMINE
     Dates: start: 20210728

REACTIONS (2)
  - Dyspnoea [None]
  - Myasthenia gravis [None]

NARRATIVE: CASE EVENT DATE: 20210728
